FAERS Safety Report 12509025 (Version 3)
Quarter: 2016Q3

REPORT INFORMATION
  Report Type: Spontaneous
  Country: DK (occurrence: GB)
  Receive Date: 20160629
  Receipt Date: 20160831
  Transmission Date: 20161109
  Serious: Yes (Other)
  Sender: FDA-Public Use
  Company Number: GB-FRI-1000085602

PATIENT
  Age: 50 Year
  Sex: Female

DRUGS (3)
  1. CITALOPRAM [Suspect]
     Active Substance: CITALOPRAM HYDROBROMIDE
     Dosage: 20 MG ONCE DAILY
     Route: 048
  2. LANSOPRAZOLE. [Concomitant]
     Active Substance: LANSOPRAZOLE
     Indication: ABDOMINAL PAIN
     Route: 065
  3. CITALOPRAM [Suspect]
     Active Substance: CITALOPRAM HYDROBROMIDE
     Indication: ANXIETY
     Dosage: 10 MG ONCE DAILY
     Route: 048
     Dates: start: 2008

REACTIONS (4)
  - Abdominal pain upper [Not Recovered/Not Resolved]
  - Cerebrovascular accident [Unknown]
  - Head injury [Unknown]
  - Cerebral haemorrhage [Not Recovered/Not Resolved]

NARRATIVE: CASE EVENT DATE: 20151130
